FAERS Safety Report 7008592-3 (Version None)
Quarter: 2010Q3

REPORT INFORMATION
  Report Type: 
  Country: None (occurrence: None)
  Receive Date: 20100922
  Receipt Date: 20100915
  Transmission Date: 20110219
  Serious: Yes (Hospitalization)
  Sender: FDA-Public Use
  Company Number: CA-ABBOTT-10P-028-0671056-00

PATIENT
  Sex: Male
  Weight: 75.364 kg

DRUGS (2)
  1. LUPRON DEPOT [Suspect]
     Indication: PROSTATE CANCER
     Dates: start: 20070710
  2. LUPRON DEPOT [Suspect]

REACTIONS (2)
  - CONFUSIONAL STATE [None]
  - TONGUE NEOPLASM MALIGNANT STAGE UNSPECIFIED [None]
